FAERS Safety Report 23869675 (Version 4)
Quarter: 2024Q3

REPORT INFORMATION
  Report Type: Spontaneous
  Country: AU (occurrence: AU)
  Receive Date: 20240517
  Receipt Date: 20240903
  Transmission Date: 20241016
  Serious: Yes (Other)
  Sender: MYLAN
  Company Number: AU-MYLANLABS-2024M1043603

PATIENT
  Age: 22 Year
  Sex: Male

DRUGS (5)
  1. CLOZARIL [Suspect]
     Active Substance: CLOZAPINE
     Indication: Schizophrenia
     Dosage: 175 MILLIGRAM, AM (IN THE MORNING)
     Route: 048
     Dates: start: 20240422, end: 20240510
  2. CLOZARIL [Suspect]
     Active Substance: CLOZAPINE
     Dosage: 175 MILLIGRAM
     Route: 048
     Dates: start: 20240820, end: 20240826
  3. OLANZAPINE [Concomitant]
     Active Substance: OLANZAPINE
     Dosage: 30 MILLIGRAM, QD (10 MG MANE, 20 MG NOCTE)
     Route: 065
  4. AMISULPRIDE [Concomitant]
     Active Substance: AMISULPRIDE
     Dosage: 400 MILLIGRAM, BID
     Route: 065
  5. FLUPENTIXOL [Concomitant]
     Active Substance: FLUPENTIXOL
     Dosage: 60 MILLIGRAM, Q2W (2-WEEKLY)
     Route: 065

REACTIONS (24)
  - Illness [Not Recovered/Not Resolved]
  - C-reactive protein increased [Recovered/Resolved]
  - Troponin T increased [Recovered/Resolved]
  - Lethargy [Not Recovered/Not Resolved]
  - Systemic viral infection [Unknown]
  - Myocarditis [Unknown]
  - Delirium [Unknown]
  - Malaise [Unknown]
  - Chills [Unknown]
  - Anion gap increased [Recovered/Resolved]
  - Tooth disorder [Unknown]
  - Blood albumin decreased [Recovered/Resolved]
  - Tooth abscess [Unknown]
  - Red cell distribution width increased [Not Recovered/Not Resolved]
  - Blood glucose increased [Recovered/Resolved]
  - Haemoglobin decreased [Not Recovered/Not Resolved]
  - Mean cell haemoglobin concentration decreased [Not Recovered/Not Resolved]
  - Haematocrit decreased [Recovered/Resolved]
  - Mean cell volume decreased [Recovering/Resolving]
  - Mean cell haemoglobin decreased [Not Recovered/Not Resolved]
  - Basophil count increased [Recovered/Resolved]
  - Chest pain [Unknown]
  - Fatigue [Unknown]
  - Nausea [Unknown]

NARRATIVE: CASE EVENT DATE: 20240501
